FAERS Safety Report 8876863 (Version 1)
Quarter: 2012Q4

REPORT INFORMATION
  Report Type: Spontaneous
  Country: US (occurrence: None)
  Receive Date: 20121024
  Receipt Date: 20121024
  Transmission Date: 20130627
  Serious: Yes (Other)
  Sender: FDA-Public Use
  Company Number: ADR-2012281118

PATIENT
  Age: 45 Year
  Sex: Female
  Weight: 52.16 kg

DRUGS (3)
  1. TOPIRAMATE TABLETS [Suspect]
     Indication: MIGRAINE
     Route: 048
     Dates: start: 201207, end: 20120910
  2. ESTRADIOL [Concomitant]
  3. OTHER SUPPLEMENTS [Concomitant]

REACTIONS (4)
  - Chest pain [None]
  - Dyspnoea [None]
  - Tremor [None]
  - Skin discolouration [None]
